FAERS Safety Report 7301427-0 (Version None)
Quarter: 2011Q1

REPORT INFORMATION
  Report Type: 
  Country: None (occurrence: None)
  Receive Date: 20110218
  Receipt Date: 20110214
  Transmission Date: 20110831
  Serious: Yes (Death, Hospitalization, Other)
  Sender: FDA-Public Use
  Company Number: PHHY2011US11330

PATIENT
  Sex: Female

DRUGS (3)
  1. DESFERAL [Suspect]
     Dosage: 200 MG, UNK
  2. EXJADE [Suspect]
     Dosage: UNK
     Dates: start: 20090413, end: 20100714
  3. EXJADE [Suspect]
     Indication: MYELODYSPLASTIC SYNDROME
     Dosage: UNK
     Dates: start: 20081021, end: 20081201

REACTIONS (15)
  - DYSPNOEA [None]
  - ALANINE AMINOTRANSFERASE INCREASED [None]
  - EJECTION FRACTION DECREASED [None]
  - PULMONARY HYPERTENSION [None]
  - ASCITES [None]
  - SERUM FERRITIN INCREASED [None]
  - OEDEMA PERIPHERAL [None]
  - PORTAL HYPERTENSION [None]
  - HEPATOSPLENOMEGALY [None]
  - RIGHT VENTRICULAR FAILURE [None]
  - WEIGHT INCREASED [None]
  - TRICUSPID VALVE STENOSIS [None]
  - CHOLELITHIASIS [None]
  - FATIGUE [None]
  - LIVER FUNCTION TEST ABNORMAL [None]
